FAERS Safety Report 24284593 (Version 1)
Quarter: 2024Q3

REPORT INFORMATION
  Report Type: Spontaneous
  Country: GB (occurrence: GB)
  Receive Date: 20240905
  Receipt Date: 20240905
  Transmission Date: 20241017
  Serious: Yes (Other)
  Sender: TEVA
  Company Number: None

PATIENT
  Age: 68 Year

DRUGS (10)
  1. DEXAMETHASONE [Suspect]
     Active Substance: DEXAMETHASONE
     Route: 048
  2. OMEPRAZOLE [Concomitant]
     Active Substance: OMEPRAZOLE
  3. NOVORAPID [Concomitant]
     Active Substance: INSULIN ASPART
     Dosage: 3 ML , IMMEDIATELY BEFORE MEALS OR WHEN NECESSARY- SHORTLY AFTER MEALS, ACCORDING TO REQUIREMENTS
     Route: 058
  4. ERYTHROMYCIN [Concomitant]
     Active Substance: ERYTHROMYCIN
  5. TOUJEO [Concomitant]
     Active Substance: INSULIN GLARGINE
     Dosage: SOLUTION FOR INJECTION 3 ML PRE-FILLED DOUBLESTAR PENS . USE AS DIRECTED
  6. DOMPERIDONE [Concomitant]
     Active Substance: DOMPERIDONE
     Route: 048
  7. CYCLIZINE [Concomitant]
     Active Substance: CYCLIZINE
  8. GEMCITABINE [Concomitant]
     Active Substance: GEMCITABINE
     Route: 042
  9. CREON [Concomitant]
     Active Substance: PANCRELIPASE AMYLASE\PANCRELIPASE LIPASE\PANCRELIPASE PROTEASE
     Dosage: CREON 25000, TAKE THREE WITH MEALS
  10. CREON [Concomitant]
     Active Substance: PANCRELIPASE AMYLASE\PANCRELIPASE LIPASE\PANCRELIPASE PROTEASE
     Dosage: CREON 25000, TWO WITH SNACKS

REACTIONS (2)
  - Hyperglycaemia [Unknown]
  - Upper gastrointestinal haemorrhage [Unknown]
